FAERS Safety Report 10056606 (Version 1)
Quarter: 2014Q2

REPORT INFORMATION
  Report Type: Spontaneous
  Country: US (occurrence: US)
  Receive Date: 20140403
  Receipt Date: 20140403
  Transmission Date: 20141212
  Serious: Yes (Other)
  Sender: FDA-Public Use
  Company Number: US-BAYER-2014-045356

PATIENT
  Age: 75 Year
  Sex: Male
  Weight: 104 kg

DRUGS (5)
  1. ALKA-SELTZER PLUS MAX COUGH, MUCUS + CONGESTION LIQUID GELS [Suspect]
     Indication: COUGH
     Dosage: 2 DF, Q4HR
     Route: 048
     Dates: start: 20140321, end: 20140321
  2. SIMVASTATIN [Concomitant]
  3. LISINOPRIL [Concomitant]
  4. METOPROLOL [Concomitant]
  5. FOLIC ACID [Concomitant]

REACTIONS (2)
  - Loss of consciousness [Recovered/Resolved]
  - Dizziness [Recovered/Resolved]
